FAERS Safety Report 19234131 (Version 1)
Quarter: 2021Q2

REPORT INFORMATION
  Report Type: Spontaneous
  Country: CA (occurrence: CA)
  Receive Date: 20210508
  Receipt Date: 20210508
  Transmission Date: 20210717
  Serious: Yes (Other)
  Sender: FDA-Public Use
  Company Number: CA-ICU MEDICAL, INC.-ICU2021CA00006

PATIENT

DRUGS (14)
  1. DIAZEPAM. [Suspect]
     Active Substance: DIAZEPAM
     Dosage: 0.8 MILLILITER
     Route: 042
  2. 0.9% SODIUM CHLORIDE INJECTION USP (100 ML) [Suspect]
     Active Substance: SODIUM CHLORIDE
     Indication: IRRIGATION THERAPY
     Dosage: SOLUTION INTRAVENOUS
     Route: 042
  3. DIAZEPAM. [Suspect]
     Active Substance: DIAZEPAM
     Indication: MUSCLE RIGIDITY
     Dosage: 0.8 MILLILITER
     Route: 042
  4. DIAZEPAM. [Suspect]
     Active Substance: DIAZEPAM
     Dosage: 1.0 MILLILITER
     Route: 042
  5. MIDAZOLAM. [Suspect]
     Active Substance: MIDAZOLAM
     Indication: INDUCTION OF ANAESTHESIA
     Dosage: 0.8 MILLILITER
     Route: 042
  6. DIAZEPAM. [Suspect]
     Active Substance: DIAZEPAM
     Dosage: 0.8 MILLILITER
     Route: 042
  7. DIAZEPAM. [Suspect]
     Active Substance: DIAZEPAM
     Dosage: 1 MILLILITER
     Route: 042
  8. PROPOFOL. [Suspect]
     Active Substance: PROPOFOL
     Indication: INDUCTION OF ANAESTHESIA
     Dosage: 1.8 MILLILITER, EMULSION FOR INJECTION
     Route: 042
  9. ACEPROMAZINE [Suspect]
     Active Substance: ACEPROMAZINE
     Indication: SEDATIVE THERAPY
     Dosage: 0.32 MILLILITER
     Route: 030
  10. PROPOFOL. [Suspect]
     Active Substance: PROPOFOL
     Dosage: 2.0 MILLILITER, EMULSION
     Route: 042
  11. DIAZEPAM. [Suspect]
     Active Substance: DIAZEPAM
     Dosage: 0.4 MILLILITER
     Route: 042
  12. DIAZEPAM. [Suspect]
     Active Substance: DIAZEPAM
     Dosage: 0.4 MILLILITER
     Route: 042
  13. DIAZEPAM. [Suspect]
     Active Substance: DIAZEPAM
     Dosage: 0.8 MILLILITER
     Route: 042
  14. MORPHINE [Suspect]
     Active Substance: MORPHINE
     Indication: SEDATIVE THERAPY
     Dosage: 0.5 MILLILITER
     Route: 030

REACTIONS (1)
  - Muscle rigidity [Recovered/Resolved]
